FAERS Safety Report 4774622-2 (Version None)
Quarter: 2005Q3

REPORT INFORMATION
  Report Type: 
  Country: None (occurrence: None)
  Receive Date: 20050921
  Receipt Date: 20050908
  Transmission Date: 20060218
  Serious: Yes (Hospitalization)
  Sender: FDA-Public Use
  Company Number: 2005AP04850

PATIENT
  Age: 56 Year
  Sex: Female
  Weight: 55 kg

DRUGS (8)
  1. ANASTROZOLE [Suspect]
     Indication: BREAST CANCER METASTATIC
     Route: 048
     Dates: start: 20050106, end: 20050720
  2. LONAFARNIB CODE NOT BROKEN [Suspect]
     Indication: BREAST CANCER METASTATIC
     Route: 048
     Dates: start: 20050105, end: 20050720
  3. FLUOROURACIL [Suspect]
     Indication: BREAST CANCER METASTATIC
     Route: 042
     Dates: start: 20050801, end: 20050801
  4. DOXORUBICIN [Suspect]
     Indication: BREAST CANCER METASTATIC
     Route: 042
     Dates: start: 20050801, end: 20050801
  5. CYCLOPHOSPHAMIDE [Suspect]
     Indication: BREAST CANCER METASTATIC
     Route: 042
     Dates: start: 20050801, end: 20050801
  6. PARACETAMOL [Concomitant]
     Indication: PAIN PROPHYLAXIS
     Route: 048
     Dates: start: 20050201
  7. FERROUS GLUCONATE [Concomitant]
     Indication: HAEMOGLOBIN DECREASED
     Route: 048
     Dates: start: 20050202
  8. FOLIC ACID [Concomitant]
     Indication: HAEMOGLOBIN DECREASED
     Route: 048
     Dates: start: 20050202

REACTIONS (6)
  - BREAST CANCER FEMALE [None]
  - FEBRILE NEUTROPENIA [None]
  - KLEBSIELLA INFECTION [None]
  - MALIGNANT NEOPLASM PROGRESSION [None]
  - PSEUDOMONAS INFECTION [None]
  - WOUND INFECTION [None]
